FAERS Safety Report 5068247-1 (Version None)
Quarter: 2006Q3

REPORT INFORMATION
  Report Type: 
  Country: None (occurrence: None)
  Receive Date: 20060802
  Receipt Date: 20050621
  Transmission Date: 20061208
  Serious: No
  Sender: FDA-Public Use
  Company Number: US-BRISTOL-MYERS SQUIBB COMPANY-13011150

PATIENT
  Age: 59 Year
  Sex: Female
  Weight: 66 kg

DRUGS (7)
  1. COUMADIN [Suspect]
     Indication: ATRIAL FLUTTER
     Dosage: 6/3/2005, 3 MG; 6/10/2005, 2 MG; 6/17/2005, 3 MG
  2. COUMADIN [Suspect]
     Indication: CARDIAC PACEMAKER INSERTION
     Dosage: 6/3/2005, 3 MG; 6/10/2005, 2 MG; 6/17/2005, 3 MG
  3. TOPROL-XL [Concomitant]
  4. SYNTHROID [Concomitant]
  5. FOSAMAX [Concomitant]
  6. MIACALCIN [Concomitant]
     Route: 045
  7. OS-CAL [Concomitant]

REACTIONS (2)
  - FEELING OF BODY TEMPERATURE CHANGE [None]
  - INTERNATIONAL NORMALISED RATIO ABNORMAL [None]
